FAERS Safety Report 9329629 (Version 1)
Quarter: 2013Q2

REPORT INFORMATION
  Report Type: Spontaneous
  Country: US (occurrence: US)
  Receive Date: 20130604
  Receipt Date: 20130604
  Transmission Date: 20140414
  Serious: No
  Sender: FDA-Public Use
  Company Number: US-SANOFI-AVENTIS-2013SA000521

PATIENT
  Age: 65 Year
  Sex: Female

DRUGS (3)
  1. LANTUS SOLOSTAR [Suspect]
     Route: 051
     Dates: start: 200907
  2. SOLOSTAR [Suspect]
     Dates: start: 200907
  3. VICTOZA [Suspect]

REACTIONS (2)
  - Feeling abnormal [Unknown]
  - Drug dose omission [Unknown]
